FAERS Safety Report 4568230-6 (Version None)
Quarter: 2005Q1

REPORT INFORMATION
  Report Type: 
  Country: None (occurrence: None)
  Receive Date: 20050131
  Receipt Date: 20050118
  Transmission Date: 20050727
  Serious: Yes (Other)
  Sender: FDA-Public Use
  Company Number: 2005015558

PATIENT
  Sex: Male
  Weight: 79.3795 kg

DRUGS (2)
  1. COOL MINT LISTERINE (MENTHOL, METHYL SALICYLATE, EUCALYPTOL, THYMOL) [Suspect]
     Indication: ALCOHOLISM
     Dosage: ORAL
     Route: 048
  2. STOMATOLOGICALS, MOUTH PREPARATIONS (STOMATOLOGICALS, MOUTH  PREPARATI [Suspect]
     Dosage: ORAL
     Route: 048

REACTIONS (3)
  - ALCOHOLISM [None]
  - INCOHERENT [None]
  - LOSS OF CONSCIOUSNESS [None]
